FAERS Safety Report 8784315 (Version 2)
Quarter: 2012Q4

REPORT INFORMATION
  Report Type: 
  Country: IT (occurrence: IT)
  Receive Date: 20120913
  Receipt Date: 20120913
  Transmission Date: 20130627
  Serious: Yes (Other)
  Sender: FDA-Public Use
  Company Number: IT-VERTEX PHARMACEUTICAL INC.-000000000000000753

PATIENT
  Age: 53 Year
  Sex: Male
  Weight: 77 kg

DRUGS (3)
  1. VX-950 [Suspect]
     Indication: HEPATITIS C
     Dosage: 750 mg, tid
     Route: 048
     Dates: start: 20120406, end: 20120525
  2. PEGINTERFERON [Suspect]
     Indication: HEPATITIS C
     Dosage: 180 ?g, weekly
     Route: 058
     Dates: start: 20120406
  3. RIBAVIRINE [Suspect]
     Indication: HEPATITIS C
     Dosage: 200 mg, 6 times per day
     Route: 048
     Dates: start: 20120406

REACTIONS (2)
  - Rash [Not Recovered/Not Resolved]
  - Erectile dysfunction [Not Recovered/Not Resolved]
